FAERS Safety Report 17676105 (Version 2)
Quarter: 2023Q2

REPORT INFORMATION
  Report Type: Report from Study
  Country: GB (occurrence: GB)
  Receive Date: 20200416
  Receipt Date: 20230404
  Transmission Date: 20230721
  Serious: Yes (Other)
  Sender: FDA-Public Use
  Company Number: GB-ROCHE-1639075

PATIENT
  Age: 58 Year
  Sex: Female

DRUGS (13)
  1. DOCETAXEL [Suspect]
     Active Substance: DOCETAXEL
     Indication: Breast cancer metastatic
     Dosage: 120 MILLIGRAM, Q3W, 6 CYCLE
     Route: 042
     Dates: start: 20150605, end: 20150605
  2. DOCETAXEL [Suspect]
     Active Substance: DOCETAXEL
     Dosage: 100 MILLIGRAM, Q3W, 5 CYCLE
     Route: 042
     Dates: start: 20150625, end: 20150918
  3. CARBOPLATIN [Suspect]
     Active Substance: CARBOPLATIN
     Indication: Breast cancer metastatic
     Dosage: 480 MILLIGRAM, Q3W, 6 CYCLE
     Route: 042
     Dates: start: 20150605, end: 20150605
  4. CARBOPLATIN [Suspect]
     Active Substance: CARBOPLATIN
     Dosage: 380 MILLIGRAM, Q3W, 5 CYCLE
     Route: 042
     Dates: start: 20150625, end: 20150918
  5. TRASTUZUMAB [Suspect]
     Active Substance: TRASTUZUMAB
     Indication: Breast cancer metastatic
     Dosage: 600 MILLIGRAM, 3XW (18 CYCLE)
     Route: 058
     Dates: start: 20150626, end: 20151120
  6. DEXAMETHASONE [Concomitant]
     Active Substance: DEXAMETHASONE
     Indication: Metastases to central nervous system
     Dosage: 8 MILLIGRAM, BID (START DATE: 03-DEC-2015)
     Route: 048
     Dates: end: 20151213
  7. MORPHINE SULFATE [Concomitant]
     Active Substance: MORPHINE SULFATE
     Dosage: 5 MILLIGRAM, PRN, AS NEEDED(START DATE: 19-OCT-2015)
     Route: 048
  8. TRAMADOL [Concomitant]
     Active Substance: TRAMADOL
     Dosage: 100 MILLIGRAM, PRN, AS NEEDED (START DATE: 19-OCT-2015)
     Route: 048
  9. AMOXICILLIN\CLAVULANATE POTASSIUM [Concomitant]
     Active Substance: AMOXICILLIN\CLAVULANATE POTASSIUM
     Dosage: 625 MILLIGRAM, TID (START DATE:19-OCT-2015)
     Route: 065
  10. BISOPROLOL [Concomitant]
     Active Substance: BISOPROLOL
     Indication: Cardiac failure
     Dosage: 7.5 MILLIGRAM, QD
     Route: 048
     Dates: start: 201506
  11. ACETAMINOPHEN [Concomitant]
     Active Substance: ACETAMINOPHEN
     Dosage: 500 MILLIGRAM, PRN, AS NEEDED (START DATE: 19-OCT-2015)
     Route: 048
  12. OMEPRAZOLE [Concomitant]
     Active Substance: OMEPRAZOLE
     Dosage: 40 MILLIGRAM, QD
     Route: 048
     Dates: start: 201506
  13. OMEPRAZOLE [Concomitant]
     Active Substance: OMEPRAZOLE
     Dosage: 40 MILLIGRAM, QD (START DATE: 03-DEC-2015)
     Route: 048
     Dates: end: 20151231

REACTIONS (2)
  - Cardiomyopathy [Unknown]
  - Alopecia [Not Recovered/Not Resolved]

NARRATIVE: CASE EVENT DATE: 20150701
